FAERS Safety Report 22532890 (Version 2)
Quarter: 2023Q2

REPORT INFORMATION
  Report Type: Spontaneous
  Country: US (occurrence: US)
  Receive Date: 20230607
  Receipt Date: 20230622
  Transmission Date: 20230722
  Serious: Yes (Death, Hospitalization, Other)
  Sender: FDA-Public Use
  Company Number: US-TEVA-2023-US-2893792

PATIENT
  Age: 69 Year
  Sex: Male

DRUGS (2)
  1. METHYLPREDNISOLONE [Suspect]
     Active Substance: METHYLPREDNISOLONE
     Indication: COVID-19
     Dosage: 80 MILLIGRAM DAILY; 40MG TWICE DAILY
     Route: 065
  2. REMDESIVIR [Concomitant]
     Active Substance: REMDESIVIR
     Indication: COVID-19
     Route: 065

REACTIONS (7)
  - Septic shock [Fatal]
  - Diverticulitis intestinal perforated [Unknown]
  - Pneumomediastinum [Unknown]
  - Pneumoperitoneum [Unknown]
  - Pelvic abscess [Unknown]
  - Mesenteric abscess [Unknown]
  - Off label use [Unknown]
